FAERS Safety Report 9537529 (Version 3)
Quarter: 2014Q1

REPORT INFORMATION
  Report Type: Report from Study
  Country: BE (occurrence: BE)
  Receive Date: 20130919
  Receipt Date: 20140311
  Transmission Date: 20141002
  Serious: Yes (Disabling)
  Sender: FDA-Public Use
  Company Number: BE-BRISTOL-MYERS SQUIBB COMPANY-19421791

PATIENT
  Age: 54 Year
  Sex: Male

DRUGS (13)
  1. ABATACEPT [Suspect]
     Indication: RHEUMATOID ARTHRITIS
     Route: 042
     Dates: start: 20110322, end: 20130315
  2. ACTEMRA [Suspect]
  3. ENBREL [Suspect]
  4. HUMIRA [Suspect]
  5. MEDROL [Concomitant]
     Dosage: 1DF= 2 TO 8 MG
  6. LEDERTREXATE [Concomitant]
  7. FOLAVIT [Concomitant]
  8. DAFALGAN [Concomitant]
  9. D-CURE [Concomitant]
  10. CALCIUM [Concomitant]
  11. MICARDIS [Concomitant]
  12. PANTOMED [Concomitant]
  13. TRANXENE [Concomitant]

REACTIONS (2)
  - Oropharyngeal pain [Recovered/Resolved]
  - Asphyxia [Recovered/Resolved]
